FAERS Safety Report 7076941-6 (Version None)
Quarter: 2010Q4

REPORT INFORMATION
  Report Type: 
  Country: None (occurrence: None)
  Receive Date: 20101101
  Receipt Date: 20101022
  Transmission Date: 20110411
  Serious: Yes (Hospitalization, Other)
  Sender: FDA-Public Use
  Company Number: BR-NOVOPROD-316980

PATIENT
  Age: 44 Year
  Sex: Female
  Weight: 55 kg

DRUGS (9)
  1. NOVORAPID FLEXPEN [Suspect]
     Indication: TYPE 1 DIABETES MELLITUS
     Dosage: UP TO 10 U DAILY, SLIDING SCALE
     Route: 058
     Dates: start: 20060101
  2. LEVOTHYROXINE SODIUM [Concomitant]
     Indication: THYROID CANCER
     Dosage: 150 MG, QD
     Route: 048
  3. PANTOPRAZOLE                       /01263202/ [Concomitant]
     Indication: GASTRIC CANCER
     Dosage: 300 MG, QD
     Route: 048
  4. AZATIOPRINA                        /00001501/ [Concomitant]
     Indication: MULTIPLE SCLEROSIS
     Dosage: 50 MG, QD
     Route: 048
  5. DEPAQUENE [Concomitant]
     Indication: EPILEPSY
     Dosage: 1500 MG, QD
  6. PHENOBARBITAL                      /00023202/ [Concomitant]
     Indication: EPILEPSY
     Dosage: 200 MG, QD
     Route: 048
  7. BACLOFEN ACTAVIS [Concomitant]
     Indication: EPILEPSY
     Dosage: 10 MG, QD
     Route: 048
  8. ENALAPRIL MALEATE [Concomitant]
     Indication: EPILEPSY
     Dosage: 20 MG, QD
     Route: 048
  9. TRINOLON [Concomitant]
     Indication: EPILEPSY
     Dosage: 0.625 MG, QD
     Route: 048

REACTIONS (2)
  - CONVULSION [None]
  - HYPOGLYCAEMIC COMA [None]
